FAERS Safety Report 8093323-9 (Version None)
Quarter: 2012Q1

REPORT INFORMATION
  Report Type: 
  Country: None (occurrence: None)
  Receive Date: 20120128
  Receipt Date: 20110901
  Transmission Date: 20120608
  Serious: No
  Sender: FDA-Public Use
  Company Number: US-ABBOTT-11P-163-0851106-00

PATIENT
  Age: 63 Year
  Sex: Female

DRUGS (16)
  1. LYRICA [Concomitant]
     Indication: PRODUCT USED FOR UNKNOWN INDICATION
     Dosage: DAILY
  2. UNKNOWN EYE DROPS [Concomitant]
     Indication: INTRAOCULAR PRESSURE INCREASED
  3. RESTORIL [Concomitant]
     Indication: INSOMNIA
  4. VIGAMOX [Concomitant]
     Indication: PRODUCT USED FOR UNKNOWN INDICATION
  5. PRED FORTE [Concomitant]
     Indication: PRODUCT USED FOR UNKNOWN INDICATION
  6. PREDNISONE TAB [Concomitant]
     Indication: PRODUCT USED FOR UNKNOWN INDICATION
  7. AZASITE [Concomitant]
     Indication: PRODUCT USED FOR UNKNOWN INDICATION
  8. TRAVATAN [Concomitant]
     Indication: PRODUCT USED FOR UNKNOWN INDICATION
  9. HUMIRA [Suspect]
     Indication: RHEUMATOID ARTHRITIS
     Dates: start: 20110701
  10. AMITRIPTYLINE HCL [Concomitant]
     Indication: PRODUCT USED FOR UNKNOWN INDICATION
     Dosage: AT NIGHT
  11. PLAQUENIL [Concomitant]
     Indication: PRODUCT USED FOR UNKNOWN INDICATION
     Dosage: DAILY
  12. VITAMIN TAB [Concomitant]
     Indication: PRODUCT USED FOR UNKNOWN INDICATION
  13. RESTASIS [Concomitant]
     Indication: PRODUCT USED FOR UNKNOWN INDICATION
  14. ANTIBIOTICS [Concomitant]
     Indication: EYE DISORDER
     Dosage: EYE DROPS
  15. NADOLOL [Concomitant]
     Indication: PRODUCT USED FOR UNKNOWN INDICATION
     Dosage: DAILY
  16. LOTEMAX [Concomitant]
     Indication: PRODUCT USED FOR UNKNOWN INDICATION

REACTIONS (1)
  - INJECTION SITE PAIN [None]
